FAERS Safety Report 6413597-7 (Version None)
Quarter: 2009Q4

REPORT INFORMATION
  Report Type: 
  Country: None (occurrence: None)
  Receive Date: 20091026
  Receipt Date: 20091016
  Transmission Date: 20100525
  Serious: Yes (Hospitalization)
  Sender: FDA-Public Use
  Company Number: FR-ABBOTT-09P-056-0603148-00

PATIENT
  Sex: Male

DRUGS (8)
  1. DEPAKENE [Suspect]
     Indication: CONVULSION
     Route: 048
  2. NOZINAN [Suspect]
     Indication: PSYCHOTIC DISORDER
     Dosage: 100 MG OF 4% SOLUTION THREE TIMES DAILY
     Route: 048
     Dates: end: 20090614
  3. NOZINAN [Suspect]
     Dosage: 250 MG DAILY
  4. LOXAPAC [Suspect]
     Indication: PSYCHOTIC DISORDER
     Dosage: 25 MG SOLUTION, 100 MG THREE TIMES DAILY
     Route: 048
     Dates: end: 20090614
  5. LOXAPAC [Suspect]
     Dosage: 200 MG DAILY
  6. RIVOTRIL [Suspect]
     Indication: DRUG USE FOR UNKNOWN INDICATION
     Dosage: 6 MG OF 2.5 MG SOLUTION DAILY
     Route: 048
     Dates: end: 20090611
  7. RIVOTRIL [Suspect]
     Dosage: 4 MG OF 2.5 MG SOLUTION DAILY
     Route: 048
     Dates: start: 20090612
  8. RIVOTRIL [Suspect]
     Dosage: 2 MG OF 2.5 MG SOLUTION DAILY
     Route: 048
     Dates: start: 20090101

REACTIONS (7)
  - BLOOD CREATINE PHOSPHOKINASE INCREASED [None]
  - DYSPHAGIA [None]
  - HYPERTHERMIA [None]
  - HYPOKINESIA [None]
  - PHARYNGEAL OEDEMA [None]
  - PNEUMONIA ASPIRATION [None]
  - SOMNOLENCE [None]
